FAERS Safety Report 8821864 (Version 2)
Quarter: 2013Q1

REPORT INFORMATION
  Report Type: Report from Study
  Country: JP (occurrence: JP)
  Receive Date: 20121002
  Receipt Date: 20130102
  Transmission Date: 20140127
  Serious: Yes (Death, Hospitalization)
  Sender: FDA-Public Use
  Company Number: JP-ROCHE-1068055

PATIENT
  Age: 53 Year
  Sex: Female
  Weight: 59 kg

DRUGS (26)
  1. TOCILIZUMAB [Suspect]
     Indication: RHEUMATOID ARTHRITIS
     Dosage: 400-480MG
     Route: 041
     Dates: start: 20080612, end: 20090805
  2. TOCILIZUMAB [Suspect]
     Indication: RHEUMATOID ARTHRITIS
     Route: 041
     Dates: start: 20091001, end: 20091001
  3. TOCILIZUMAB [Suspect]
     Indication: RHEUMATOID ARTHRITIS
     Route: 041
     Dates: start: 20091117, end: 20100707
  4. VOLTAREN SR [Concomitant]
     Indication: RHEUMATOID ARTHRITIS
     Route: 048
  5. DEPO-MEDROL [Concomitant]
     Indication: RHEUMATOID ARTHRITIS
     Route: 014
     Dates: start: 20080327, end: 20080327
  6. DEPO-MEDROL [Concomitant]
     Indication: RHEUMATOID ARTHRITIS
     Route: 014
     Dates: start: 20080404, end: 20080404
  7. DEPO-MEDROL [Concomitant]
     Indication: RHEUMATOID ARTHRITIS
     Route: 014
     Dates: start: 20080424, end: 20080424
  8. DEPO-MEDROL [Concomitant]
     Indication: RHEUMATOID ARTHRITIS
     Route: 014
     Dates: start: 20080513, end: 20080513
  9. DEPO-MEDROL [Concomitant]
     Indication: RHEUMATOID ARTHRITIS
     Route: 014
     Dates: start: 20080612, end: 20080612
  10. DEPO-MEDROL [Concomitant]
     Indication: RHEUMATOID ARTHRITIS
     Route: 014
     Dates: start: 20080624, end: 20080624
  11. DEPO-MEDROL [Concomitant]
     Indication: RHEUMATOID ARTHRITIS
     Route: 014
     Dates: start: 20080710, end: 20080710
  12. DEPO-MEDROL [Concomitant]
     Indication: RHEUMATOID ARTHRITIS
     Route: 014
     Dates: start: 20080722, end: 20080722
  13. DEPO-MEDROL [Concomitant]
     Indication: RHEUMATOID ARTHRITIS
     Route: 014
     Dates: start: 20080807, end: 20080807
  14. DEPO-MEDROL [Concomitant]
     Indication: RHEUMATOID ARTHRITIS
     Route: 014
     Dates: start: 20080828, end: 20080828
  15. DEPO-MEDROL [Concomitant]
     Indication: RHEUMATOID ARTHRITIS
     Route: 014
     Dates: start: 20080904, end: 20080904
  16. DEPO-MEDROL [Concomitant]
     Indication: RHEUMATOID ARTHRITIS
     Route: 014
     Dates: start: 20081014, end: 20081014
  17. KELNAC [Concomitant]
     Indication: PROPHYLAXIS
     Route: 048
  18. NORVASC [Concomitant]
     Indication: HYPERTENSION
     Route: 048
  19. SELBEX [Concomitant]
     Indication: PROPHYLAXIS
     Route: 048
  20. THYRADIN-S [Concomitant]
     Indication: HYPOTHYROIDISM
     Route: 048
  21. URSO [Concomitant]
     Indication: HEPATIC FUNCTION ABNORMAL
     Route: 048
     Dates: start: 2006, end: 20100911
  22. OMEPRAL [Concomitant]
     Indication: GASTRITIS
     Route: 048
     Dates: end: 20081111
  23. OMEPRAL [Concomitant]
     Indication: GASTRITIS
     Route: 048
     Dates: start: 20081112, end: 20081225
  24. OMEPRAL [Concomitant]
     Indication: GASTRITIS
     Route: 048
     Dates: start: 20081226, end: 20090205
  25. OMEPRAL [Concomitant]
     Indication: GASTRITIS
     Route: 048
     Dates: start: 20090206
  26. CYTOTEC [Concomitant]
     Indication: PROPHYLAXIS
     Route: 048
     Dates: start: 200902

REACTIONS (5)
  - Pyrexia [Recovered/Resolved]
  - Anal abscess [Recovered/Resolved]
  - Hepatic failure [Fatal]
  - Biliary cirrhosis primary [Fatal]
  - Anal haemorrhage [Recovered/Resolved]
